FAERS Safety Report 18123009 (Version 1)
Quarter: 2020Q3

REPORT INFORMATION
  Report Type: Spontaneous
  Country: US (occurrence: US)
  Receive Date: 20200807
  Receipt Date: 20200807
  Transmission Date: 20201103
  Serious: No
  Sender: FDA-Public Use
  Company Number: US-SA-2020SA204886

PATIENT

DRUGS (12)
  1. VITAMIN D2 [Concomitant]
     Active Substance: ERGOCALCIFEROL
  2. CREON [Concomitant]
     Active Substance: PANCRELIPASE AMYLASE\PANCRELIPASE LIPASE\PANCRELIPASE PROTEASE
  3. LEVALBUTEROL [LEVOSALBUTAMOL] [Concomitant]
     Active Substance: LEVALBUTEROL
  4. GABAPENTIN. [Concomitant]
     Active Substance: GABAPENTIN
  5. SUMATRIPTAN [SUMATRIPTAN SUCCINATE] [Concomitant]
     Active Substance: SUMATRIPTAN SUCCINATE
  6. PHYTONADIONE. [Concomitant]
     Active Substance: PHYTONADIONE
  7. HYPER [Concomitant]
  8. TRIKAFTA [Concomitant]
     Active Substance: ELEXACAFTOR\IVACAFTOR\TEZACAFTOR
  9. DUPIXENT [Suspect]
     Active Substance: DUPILUMAB
     Dosage: 300 MG, QOW
     Route: 058
     Dates: start: 20200724
  10. VERAMIL [Concomitant]
  11. AZITHROMYCIN ANHYDROUS. [Concomitant]
     Active Substance: AZITHROMYCIN ANHYDROUS
  12. PULMOZYME [Concomitant]
     Active Substance: DORNASE ALFA

REACTIONS (3)
  - Discomfort [Unknown]
  - Nasal polyps [Unknown]
  - Pain [Unknown]

NARRATIVE: CASE EVENT DATE: 202007
